FAERS Safety Report 23273221 (Version 1)
Quarter: 2023Q4

REPORT INFORMATION
  Report Type: Spontaneous
  Country: FR (occurrence: FR)
  Receive Date: 20231207
  Receipt Date: 20231207
  Transmission Date: 20240110
  Serious: Yes (Life-Threatening)
  Sender: FDA-Public Use
  Company Number: None

PATIENT
  Age: 45 Year
  Sex: Female
  Weight: 53 kg

DRUGS (4)
  1. PROPOFOL [Suspect]
     Active Substance: PROPOFOL
     Indication: General anaesthesia
     Route: 042
     Dates: start: 20231109, end: 20231109
  2. SUFENTANIL [Suspect]
     Active Substance: SUFENTANIL
     Indication: General anaesthesia
     Dosage: INTRAVENOUS
     Dates: start: 20231109, end: 20231109
  3. KETAMINE [Suspect]
     Active Substance: KETAMINE
     Indication: General anaesthesia
     Dosage: INTRAVENOUS
     Dates: start: 20231109, end: 20231109
  4. ATRACURIUM [Suspect]
     Active Substance: ATRACURIUM
     Indication: General anaesthesia
     Dosage: INTRAVENOUS
     Dates: start: 20231109, end: 20231109

REACTIONS (1)
  - Anaphylactic shock [Recovered/Resolved]

NARRATIVE: CASE EVENT DATE: 20231109
